FAERS Safety Report 9015343 (Version 1)
Quarter: 2013Q1

REPORT INFORMATION
  Report Type: Spontaneous
  Country: GB (occurrence: None)
  Receive Date: 20130103
  Receipt Date: 20130103
  Transmission Date: 20140127
  Serious: Yes (Other)
  Sender: FDA-Public Use
  Company Number: GER/UKI/12/0027192

PATIENT
  Age: 72 Year
  Sex: Male

DRUGS (9)
  1. ATORVASTATIN (ATORVASTATIN) [Suspect]
     Indication: PRODUCT USED FOR UNKNOWN INDICATION
     Dates: start: 20121210
  2. AMLODIPINE (AMLODIPINE) [Concomitant]
  3. ATENOLOL (ATENOLOL) [Concomitant]
  4. DOXAZOSIN (DOXAZOSIN) [Concomitant]
  5. INSULIN  GLARGINE (INSULIN GLARGINE) [Concomitant]
  6. LISINOPRIL (LISINOPRIL) [Concomitant]
  7. NOVORAPID (INSULIN ASPART) [Concomitant]
  8. RANITIDINE (RANITIDINE) [Concomitant]
  9. SIMVASTATIN (SIMVASTATIN) [Concomitant]

REACTIONS (7)
  - Blood glucose increased [None]
  - Feeling drunk [None]
  - Asthenia [None]
  - Arthralgia [None]
  - Myalgia [None]
  - Dyspnoea [None]
  - Feeling abnormal [None]
